FAERS Safety Report 7706721 (Version 4)
Quarter: 2012Q4

REPORT INFORMATION
  Report Type: Report from Study
  Country: US (occurrence: US)
  Receive Date: 20101214
  Receipt Date: 20121017
  Transmission Date: 20130627
  Serious: Yes (Hospitalization)
  Sender: FDA-Public Use
  Company Number: US-JNJFOC-20101202938

PATIENT
  Age: 14 Year
  Sex: Female
  Weight: 58.1 kg

DRUGS (22)
  1. INFLIXIMAB, RECOMBINANT [Suspect]
     Indication: CROHN^S DISEASE
     Route: 042
     Dates: start: 20071114
  2. FENTANYL [Suspect]
     Indication: PAIN MANAGEMENT
     Dates: end: 20101105
  3. PREDNISONE [Concomitant]
  4. MULTIVITAMINS [Concomitant]
  5. 5ASA [Concomitant]
     Route: 048
  6. METHOTREXATE [Concomitant]
  7. ZITHROMAX [Concomitant]
  8. VITAMIN D [Concomitant]
  9. LUXIQ [Concomitant]
  10. ALBUTEROL [Concomitant]
  11. SINGULAIR [Concomitant]
  12. PANCRELIPASE [Concomitant]
  13. PRILOSEC [Concomitant]
  14. NU-IRON [Concomitant]
  15. FOLIC ACID [Concomitant]
  16. FLORASTOR [Concomitant]
  17. OXYCODONE [Concomitant]
  18. ELAVIL [Concomitant]
  19. FISH OIL [Concomitant]
  20. ALL OTHER THERAPEUTIC DRUGS [Concomitant]
  21. DERMASMOOTH [Concomitant]
  22. LACTASE [Concomitant]

REACTIONS (1)
  - Withdrawal syndrome [Recovered/Resolved with Sequelae]
